FAERS Safety Report 5530828-6 (Version None)
Quarter: 2007Q4

REPORT INFORMATION
  Report Type: 
  Country: None (occurrence: None)
  Receive Date: 20071130
  Receipt Date: 20071121
  Transmission Date: 20080405
  Serious: Yes (Death, Hospitalization)
  Sender: FDA-Public Use
  Company Number: JP-AMGEN-US247496

PATIENT
  Sex: Male

DRUGS (1)
  1. ENBREL [Suspect]
     Indication: RHEUMATOID ARTHRITIS
     Route: 058
     Dates: start: 20070227, end: 20070303

REACTIONS (3)
  - CELLULITIS [None]
  - HEPATIC FUNCTION ABNORMAL [None]
  - STAPHYLOCOCCAL INFECTION [None]
